FAERS Safety Report 6211197-5 (Version None)
Quarter: 2009Q2

REPORT INFORMATION
  Report Type: 
  Country: None (occurrence: None)
  Receive Date: 20090602
  Receipt Date: 20090521
  Transmission Date: 20091009
  Serious: Yes (Hospitalization, Other)
  Sender: FDA-Public Use
  Company Number: US-BAYER-US-2006-002247

PATIENT
  Age: 58 Year
  Sex: Female

DRUGS (18)
  1. BETASERON [Suspect]
     Indication: RELAPSING-REMITTING MULTIPLE SCLEROSIS
     Dosage: TOTAL DAILY DOSE: 8 MIU
     Route: 058
     Dates: start: 20060211
  2. BETASERON [Suspect]
     Dosage: TOTAL DAILY DOSE: 8 MIU
     Route: 058
     Dates: start: 20050417, end: 20060206
  3. DEPAKOTE [Concomitant]
     Indication: CONVULSION
     Dosage: TOTAL DAILY DOSE: 1000 MG
     Route: 048
  4. DEPAKOTE [Concomitant]
  5. DONNATAL [Concomitant]
     Indication: GASTROINTESTINAL HYPOMOTILITY
     Dosage: TOTAL DAILY DOSE: 2 DF
     Route: 048
  6. LASIX [Concomitant]
     Route: 048
  7. INDERAL LA [Concomitant]
     Indication: MIGRAINE
     Route: 048
  8. ZOLOFT [Concomitant]
     Indication: DEPRESSION
     Dosage: TOTAL DAILY DOSE: 37.5 MG  UNIT DOSE: 75 MG
     Route: 048
  9. HYDROXYZINE HYDROCHLORIDE [Concomitant]
     Indication: DERMATITIS ALLERGIC
     Dosage: TOTAL DAILY DOSE: 50 MG
     Route: 048
  10. NABUMETONE [Concomitant]
     Indication: OSTEOARTHRITIS
     Dosage: TOTAL DAILY DOSE: 1000 MG
     Route: 048
  11. FLOMAX [Concomitant]
     Indication: RESIDUAL URINE
     Route: 048
  12. NEXIUM [Concomitant]
     Indication: GASTROOESOPHAGEAL REFLUX DISEASE
     Dosage: TOTAL DAILY DOSE: 40 MG
     Route: 048
  13. FAMOTIDINE [Concomitant]
     Indication: GASTRIC ULCER
     Dosage: TOTAL DAILY DOSE: 20 MG
     Route: 048
  14. TIGAN [Concomitant]
     Indication: VOMITING
     Dosage: TOTAL DAILY DOSE: 200 MG  UNIT DOSE: 200 MG
     Route: 054
  15. SPIROLONE [Concomitant]
     Indication: RESIDUAL URINE
     Dosage: TOTAL DAILY DOSE: 25 MG
     Route: 048
  16. ALBUTEROL [Concomitant]
     Indication: ASTHMA
     Dosage: TOTAL DAILY DOSE: 8 PUFF  UNIT DOSE: 2 PUFF
  17. DIAZEPAM [Concomitant]
     Indication: CONVULSION
     Dosage: TOTAL DAILY DOSE: 20 MG
     Route: 048
  18. ZYRTEC [Concomitant]
     Indication: HYPERSENSITIVITY
     Dosage: TOTAL DAILY DOSE: 10 MG
     Route: 048

REACTIONS (22)
  - ANAEMIA [None]
  - ANTICONVULSANT DRUG LEVEL DECREASED [None]
  - ASTHENIA [None]
  - BLOOD POTASSIUM DECREASED [None]
  - BLOOD PRESSURE IMMEASURABLE [None]
  - BONE PAIN [None]
  - CARDIAC ARREST [None]
  - CONFUSIONAL STATE [None]
  - CONTUSION [None]
  - CONVULSION [None]
  - EYE ROLLING [None]
  - FALL [None]
  - GRAND MAL CONVULSION [None]
  - HAEMOGLOBIN DECREASED [None]
  - HYPOTENSION [None]
  - HYPOVENTILATION [None]
  - INFLUENZA [None]
  - LARYNGITIS [None]
  - MYALGIA [None]
  - PULSE ABSENT [None]
  - RESPIRATORY ARREST [None]
  - URINARY INCONTINENCE [None]
